FAERS Safety Report 4376829-5 (Version None)
Quarter: 2004Q2

REPORT INFORMATION
  Report Type: 
  Country: None (occurrence: None)
  Receive Date: 20040609
  Receipt Date: 20040429
  Transmission Date: 20050107
  Serious: Yes (Hospitalization)
  Sender: FDA-Public Use
  Company Number: PHEH2004US04797

PATIENT
  Age: 72 Year
  Sex: Male

DRUGS (12)
  1. GLEEVEC [Suspect]
     Indication: CHRONIC MYELOID LEUKAEMIA
     Dosage: SEE IMAGE
     Route: 048
     Dates: end: 20040301
  2. GLEEVEC [Suspect]
     Indication: CHRONIC MYELOID LEUKAEMIA
     Dosage: SEE IMAGE
     Route: 048
     Dates: start: 20040213
  3. GLEEVEC [Suspect]
     Indication: CHRONIC MYELOID LEUKAEMIA
     Dosage: SEE IMAGE
     Route: 048
     Dates: start: 20040408
  4. LISINOPRIL [Concomitant]
  5. TOPROL-XL [Concomitant]
  6. VIOXX [Concomitant]
  7. NEXIUM [Concomitant]
  8. LIBRAX (CHLORDIAZEPOXIDE, CLIDINIUM BROMIDE) [Concomitant]
  9. XANAX [Concomitant]
  10. AMBIEN [Concomitant]
  11. . [Concomitant]
  12. GLEEVEC [Suspect]
     Dosage: 100 MG, QD
     Dates: start: 20040408

REACTIONS (2)
  - PULMONARY OEDEMA [None]
  - RASH [None]
